FAERS Safety Report 12082680 (Version 1)
Quarter: 2016Q1

REPORT INFORMATION
  Report Type: Report from Study
  Country: HN (occurrence: HN)
  Receive Date: 20160217
  Receipt Date: 20160217
  Transmission Date: 20160526
  Serious: Yes (Death)
  Sender: FDA-Public Use
  Company Number: HN-ASTRAZENECA-2016SE14574

PATIENT
  Age: 75 Year
  Sex: Female

DRUGS (2)
  1. ATACAND [Suspect]
     Active Substance: CANDESARTAN CILEXETIL
     Route: 048
     Dates: start: 20130816
  2. SYMBICORT [Concomitant]
     Active Substance: BUDESONIDE\FORMOTEROL FUMARATE DIHYDRATE
     Dosage: 160 UG, UNKNOWN
     Route: 055

REACTIONS (1)
  - Death [Fatal]

NARRATIVE: CASE EVENT DATE: 20150109
